FAERS Safety Report 19217244 (Version 3)
Quarter: 2021Q3

REPORT INFORMATION
  Report Type: Report from Study
  Country: None (occurrence: US)
  Receive Date: 20210505
  Receipt Date: 20210805
  Transmission Date: 20211014
  Serious: Yes (Hospitalization, Other)
  Sender: FDA-Public Use
  Company Number: US-ABBVIE-21K-163-3886734-00

PATIENT
  Age: 56 Year
  Sex: Male
  Weight: 79.45 kg

DRUGS (13)
  1. RINVOQ [Suspect]
     Active Substance: UPADACITINIB
     Route: 048
     Dates: start: 20210305, end: 20210325
  2. RINVOQ [Suspect]
     Active Substance: UPADACITINIB
     Route: 048
     Dates: start: 20210328
  3. ATENOLOL. [Concomitant]
     Active Substance: ATENOLOL
     Indication: TACHYCARDIA
  4. STRATTERA [Concomitant]
     Active Substance: ATOMOXETINE HYDROCHLORIDE
     Indication: ATTENTION DEFICIT HYPERACTIVITY DISORDER
  5. RINVOQ [Suspect]
     Active Substance: UPADACITINIB
     Indication: RHEUMATOID ARTHRITIS
     Route: 048
     Dates: start: 202102, end: 20210225
  6. COVID?19 VACCINE [Concomitant]
     Indication: COVID-19 IMMUNISATION
     Dosage: MODERNA
     Route: 030
     Dates: start: 20210226, end: 20210226
  7. OXYCODONE [Concomitant]
     Active Substance: OXYCODONE
     Indication: PAIN
  8. STRATTERA [Concomitant]
     Active Substance: ATOMOXETINE HYDROCHLORIDE
     Indication: BUNDLE BRANCH BLOCK LEFT
  9. COVID?19 VACCINE [Concomitant]
     Dosage: MODERNA
     Route: 030
     Dates: start: 20210326, end: 20210326
  10. ATENOLOL. [Concomitant]
     Active Substance: ATENOLOL
     Indication: BUNDLE BRANCH BLOCK LEFT
  11. OXYCODONE [Concomitant]
     Active Substance: OXYCODONE
     Indication: BUNDLE BRANCH BLOCK LEFT
  12. MELOXICAM. [Concomitant]
     Active Substance: MELOXICAM
     Indication: INFLAMMATION
  13. MELOXICAM. [Concomitant]
     Active Substance: MELOXICAM
     Indication: BUNDLE BRANCH BLOCK LEFT

REACTIONS (37)
  - Nerve compression [Unknown]
  - Abdominal discomfort [Recovered/Resolved]
  - Diverticulitis [Not Recovered/Not Resolved]
  - Diarrhoea [Unknown]
  - Vomiting [Recovered/Resolved]
  - Respiratory tract infection [Recovered/Resolved]
  - Diarrhoea [Recovered/Resolved]
  - Colitis [Not Recovered/Not Resolved]
  - Tongue discolouration [Not Recovered/Not Resolved]
  - Spinal stenosis [Not Recovered/Not Resolved]
  - Vomiting [Recovered/Resolved]
  - Diverticulitis [Recovered/Resolved]
  - Colitis [Recovered/Resolved]
  - Mobility decreased [Unknown]
  - Feeding disorder [Unknown]
  - Unevaluable event [Unknown]
  - Arthralgia [Recovered/Resolved]
  - Gastric disorder [Unknown]
  - Tachycardia [Unknown]
  - Testis cancer [Unknown]
  - Autonomic neuropathy [Not Recovered/Not Resolved]
  - Oropharyngeal discomfort [Recovering/Resolving]
  - Adverse food reaction [Unknown]
  - Hepatic enzyme increased [Unknown]
  - Sciatica [Unknown]
  - White blood cell count increased [Not Recovered/Not Resolved]
  - Bundle branch block left [Unknown]
  - Rheumatoid arthritis [Unknown]
  - Arthralgia [Recovered/Resolved]
  - Weight decreased [Not Recovered/Not Resolved]
  - Oesophagitis [Recovering/Resolving]
  - Abdominal pain [Not Recovered/Not Resolved]
  - Polyp [Recovered/Resolved]
  - Abdominal pain upper [Recovering/Resolving]
  - Intervertebral disc protrusion [Not Recovered/Not Resolved]
  - Bedridden [Not Recovered/Not Resolved]
  - Presyncope [Not Recovered/Not Resolved]

NARRATIVE: CASE EVENT DATE: 2021
